FAERS Safety Report 6916275-0 (Version None)
Quarter: 2010Q3

REPORT INFORMATION
  Report Type: 
  Country: None (occurrence: None)
  Receive Date: 20100810
  Receipt Date: 20100729
  Transmission Date: 20110219
  Serious: Yes (Other)
  Sender: FDA-Public Use
  Company Number: FR-PFIZER INC-2010095339

PATIENT
  Age: 86 Year
  Sex: Male

DRUGS (1)
  1. LYRICA [Suspect]
     Dosage: 75 MG, 2X/DAY

REACTIONS (6)
  - BLOOD PRESSURE INCREASED [None]
  - DRY MOUTH [None]
  - DYSURIA [None]
  - FEELING DRUNK [None]
  - VERTIGO [None]
  - VISION BLURRED [None]
